FAERS Safety Report 11724995 (Version 1)
Quarter: 2015Q4

REPORT INFORMATION
  Report Type: Spontaneous
  Country: US (occurrence: US)
  Receive Date: 20151111
  Receipt Date: 20151111
  Transmission Date: 20160304
  Serious: Yes (Other)
  Sender: FDA-Public Use
  Company Number: US-UCBSA-2014006947

PATIENT

DRUGS (9)
  1. KEPPRA [Suspect]
     Active Substance: LEVETIRACETAM
     Dosage: DAILY DOSE: 2000 MG
  2. DILANTIN [Concomitant]
     Active Substance: PHENYTOIN
     Dosage: DOSE UNKNOWN
  3. TEGRETOL [Suspect]
     Active Substance: CARBAMAZEPINE
     Dosage: DOSE UNKNOWN
     Dates: start: 2010
  4. KEPPRA [Suspect]
     Active Substance: LEVETIRACETAM
     Dosage: DOSE UNKNOWN
  5. KEPPRA [Suspect]
     Active Substance: LEVETIRACETAM
     Dosage: DAILY DOSE : 4000 MG
  6. ATIVAN [Concomitant]
     Active Substance: LORAZEPAM
  7. VIMPAT [Suspect]
     Active Substance: LACOSAMIDE
     Dosage: DAILY DOSE : 200 MG
  8. TOPAMAX [Concomitant]
     Active Substance: TOPIRAMATE
     Dosage: UNKNOWN DOSE
  9. TOPAMAX [Concomitant]
     Active Substance: TOPIRAMATE
     Dosage: DAILY DOSE OF 800 MG

REACTIONS (7)
  - Complex partial seizures [Unknown]
  - Generalised tonic-clonic seizure [Recovered/Resolved]
  - Drug hypersensitivity [Unknown]
  - Suicidal ideation [Unknown]
  - Overdose [Unknown]
  - Depression [Unknown]
  - Simple partial seizures [Unknown]

NARRATIVE: CASE EVENT DATE: 2010
